FAERS Safety Report 15576822 (Version 1)
Quarter: 2018Q4

REPORT INFORMATION
  Report Type: Report from Study
  Country: CA (occurrence: CA)
  Receive Date: 20181101
  Receipt Date: 20181101
  Transmission Date: 20190205
  Serious: Yes (Hospitalization)
  Sender: FDA-Public Use
  Company Number: CA-ACTELION-A-NJ2017-163369

PATIENT
  Age: 56 Year
  Sex: Male
  Weight: 75 kg

DRUGS (8)
  1. CARIPUL [Suspect]
     Active Substance: EPOPROSTENOL
     Dosage: 13 NG/KG, PER MIN
     Route: 042
     Dates: start: 20130905
  2. CARIPUL [Suspect]
     Active Substance: EPOPROSTENOL
     Indication: PULMONARY ARTERIAL HYPERTENSION
     Dosage: 30000 NG/ML, UNK
     Route: 042
  3. IMODIUM [Concomitant]
     Active Substance: LOPERAMIDE HYDROCHLORIDE
  4. COUMADIN [Concomitant]
     Active Substance: WARFARIN SODIUM
  5. DIAZEPAM. [Concomitant]
     Active Substance: DIAZEPAM
  6. DOXYCIN [Concomitant]
     Active Substance: DOXYCYCLINE
  7. ADCIRCA [Concomitant]
     Active Substance: TADALAFIL
  8. PREVACID [Concomitant]
     Active Substance: LANSOPRAZOLE

REACTIONS (5)
  - Headache [Not Recovered/Not Resolved]
  - Hospitalisation [Unknown]
  - Hot flush [Not Recovered/Not Resolved]
  - Diarrhoea [Not Recovered/Not Resolved]
  - Flushing [Not Recovered/Not Resolved]

NARRATIVE: CASE EVENT DATE: 201711
